FAERS Safety Report 25374338 (Version 3)
Quarter: 2025Q3

REPORT INFORMATION
  Report Type: Spontaneous
  Country: CN (occurrence: CN)
  Receive Date: 20250529
  Receipt Date: 20250805
  Transmission Date: 20251020
  Serious: Yes (Other)
  Sender: PFIZER
  Company Number: CN-PFIZER INC-PV202500063007

PATIENT
  Age: 59 Year
  Sex: Male

DRUGS (5)
  1. XYNTHA [Suspect]
     Active Substance: MOROCTOCOG ALFA
     Indication: Factor VIII deficiency
     Dosage: 2000 IU, 2X/WEEK
     Route: 040
     Dates: start: 20250123
  2. XYNTHA [Suspect]
     Active Substance: MOROCTOCOG ALFA
     Dosage: 2000 IU, 2X/WEEK
     Route: 040
     Dates: start: 20250328
  3. XYNTHA [Suspect]
     Active Substance: MOROCTOCOG ALFA
     Dosage: 2000 IU, 2X/WEEK
     Route: 040
     Dates: start: 20250425
  4. XYNTHA [Suspect]
     Active Substance: MOROCTOCOG ALFA
     Dosage: 2000 IU, 2X/WEEK
     Route: 040
     Dates: start: 20250523
  5. XYNTHA [Suspect]
     Active Substance: MOROCTOCOG ALFA
     Dosage: 2000 IU, 2X/WEEK
     Route: 040
     Dates: start: 20250623

REACTIONS (8)
  - Activated partial thromboplastin time prolonged [Unknown]
  - Drug ineffective [Unknown]
  - Arthralgia [Unknown]
  - Joint swelling [Unknown]
  - Skin temperature increased [Unknown]
  - Decreased activity [Unknown]
  - Haemarthrosis [Unknown]
  - Erythema [Unknown]

NARRATIVE: CASE EVENT DATE: 20250522
